FAERS Safety Report 25652276 (Version 1)
Quarter: 2025Q3

REPORT INFORMATION
  Report Type: Spontaneous
  Country: US (occurrence: US)
  Receive Date: 20250807
  Receipt Date: 20250807
  Transmission Date: 20251021
  Serious: No
  Sender: SANOFI AVENTIS
  Company Number: US-SA-2025SA227393

PATIENT
  Age: 61 Year
  Sex: Female
  Weight: 75 kg

DRUGS (7)
  1. DUPIXENT [Suspect]
     Active Substance: DUPILUMAB
     Indication: Illness
     Dosage: UNK UNK, QOW
     Route: 058
  2. BREZTRI AEROSPHERE [BUDESONIDE;FORMOTEROL FUMARATE DIHYDRATE;GLYCOPYRR [Concomitant]
  3. GABAPENTIN [Concomitant]
     Active Substance: GABAPENTIN
  4. ALBUTEROL SULFATE [Concomitant]
     Active Substance: ALBUTEROL SULFATE
  5. XANAX [Concomitant]
     Active Substance: ALPRAZOLAM
  6. CELEXA [Concomitant]
     Active Substance: CITALOPRAM HYDROBROMIDE
  7. VITAMINS NOS [Concomitant]
     Active Substance: VITAMINS

REACTIONS (2)
  - Weight increased [Unknown]
  - Limb operation [Unknown]

NARRATIVE: CASE EVENT DATE: 20250701
